FAERS Safety Report 8111277-3 (Version None)
Quarter: 2012Q1

REPORT INFORMATION
  Report Type: 
  Country: None (occurrence: None)
  Receive Date: 20120203
  Receipt Date: 20110727
  Transmission Date: 20120608
  Serious: No
  Sender: FDA-Public Use
  Company Number: US-GLAXOSMITHKLINE-A0939556A

PATIENT
  Age: 37 Year
  Sex: Female

DRUGS (2)
  1. LAMICTAL [Suspect]
     Route: 065
  2. LAMICTAL [Suspect]
     Indication: EPILEPSY
     Route: 048
     Dates: start: 20010101

REACTIONS (8)
  - ERYTHEMA [None]
  - BLISTER [None]
  - SKIN BURNING SENSATION [None]
  - PIGMENTATION DISORDER [None]
  - SKIN DISORDER [None]
  - RASH [None]
  - SKIN DISCOLOURATION [None]
  - PRURITUS [None]
